FAERS Safety Report 9931036 (Version 5)
Quarter: 2016Q4

REPORT INFORMATION
  Report Type: Report from Study
  Country: BR (occurrence: BR)
  Receive Date: 20140227
  Receipt Date: 20161209
  Transmission Date: 20170207
  Serious: Yes (Other)
  Sender: FDA-Public Use
  Company Number: PHHY2013BR144302

PATIENT
  Age: 34 Year
  Sex: Male
  Weight: 64 kg

DRUGS (9)
  1. SERTRALINE [Suspect]
     Active Substance: SERTRALINE HYDROCHLORIDE
     Indication: DEPRESSION
     Dosage: 150 MG, QD
     Route: 065
     Dates: start: 2012
  2. GILENYA [Suspect]
     Active Substance: FINGOLIMOD HYDROCHLORIDE
     Indication: MULTIPLE SCLEROSIS
     Dosage: 0.5 MG, QD
     Route: 048
     Dates: start: 2011
  3. GILENYA [Suspect]
     Active Substance: FINGOLIMOD HYDROCHLORIDE
     Dosage: 0.5 MG, QOD
     Route: 048
  4. GILENYA [Suspect]
     Active Substance: FINGOLIMOD HYDROCHLORIDE
     Dosage: 0.5 MG, DAILY FROM MON TO FRI
     Route: 048
  5. GILENYA [Suspect]
     Active Substance: FINGOLIMOD HYDROCHLORIDE
     Dosage: 0.5 MG, DAILY EXCEPT ON SATURDAY AND SUNDAY
     Route: 048
  6. ANAFRANIL [Concomitant]
     Active Substance: CLOMIPRAMINE HYDROCHLORIDE
     Indication: SLEEP DISORDER
     Dosage: 1 DF, QD (2 YEARS AGO)
     Route: 048
  7. GILENYA [Suspect]
     Active Substance: FINGOLIMOD HYDROCHLORIDE
     Dosage: 0.5 MG, QD
     Route: 048
     Dates: start: 20140216
  8. EXODUS//ESCITALOPRAM OXALATE [Concomitant]
     Active Substance: ESCITALOPRAM OXALATE
     Indication: DEPRESSION
     Dosage: 2 DF, QD (2 YEARS AGO)
     Route: 048
  9. GILENYA [Suspect]
     Active Substance: FINGOLIMOD HYDROCHLORIDE
     Dosage: 0.5 MG, QD
     Route: 048
     Dates: start: 201307, end: 201311

REACTIONS (11)
  - Drug ineffective [Unknown]
  - Decreased appetite [Unknown]
  - Asthenia [Recovering/Resolving]
  - Hepatic enzyme increased [Recovered/Resolved]
  - Nervous system disorder [Unknown]
  - Multiple sclerosis [Recovering/Resolving]
  - Memory impairment [Not Recovered/Not Resolved]
  - Liver disorder [Recovered/Resolved]
  - Gastritis [Recovering/Resolving]
  - Dyspepsia [Recovering/Resolving]
  - Prescribed underdose [Unknown]

NARRATIVE: CASE EVENT DATE: 201512
